FAERS Safety Report 4831331-9 (Version None)
Quarter: 2005Q4

REPORT INFORMATION
  Report Type: 
  Country: None (occurrence: None)
  Receive Date: 20051116
  Receipt Date: 20051116
  Transmission Date: 20060501
  Serious: Yes (Hospitalization)
  Sender: FDA-Public Use
  Company Number: None

PATIENT
  Sex: Female
  Weight: 76.2043 kg

DRUGS (1)
  1. ORTHO EVRA [Suspect]
     Indication: SKIN IRRITATION
     Dosage: 1 PATCH WEEKLY TRANSDERMA
     Route: 062
     Dates: start: 20051002, end: 20051106

REACTIONS (1)
  - CHOLELITHIASIS [None]
